FAERS Safety Report 16907481 (Version 2)
Quarter: 2021Q1

REPORT INFORMATION
  Report Type: Spontaneous
  Country: US (occurrence: US)
  Receive Date: 20191011
  Receipt Date: 20210215
  Transmission Date: 20210419
  Serious: Yes (Death, Hospitalization, Other)
  Sender: FDA-Public Use
  Company Number: US-SUN PHARMACEUTICAL INDUSTRIES LTD-2019R1-223153

PATIENT
  Age: 16 Year

DRUGS (1)
  1. FERROUS SULFATE. [Suspect]
     Active Substance: FERROUS SULFATE
     Indication: PRODUCT USED FOR UNKNOWN INDICATION
     Dosage: 48 MG/KG APPROXIMATELY
     Route: 048

REACTIONS (18)
  - Diarrhoea haemorrhagic [Unknown]
  - Multiple organ dysfunction syndrome [Fatal]
  - Intestinal perforation [Unknown]
  - Toxicity to various agents [Unknown]
  - Pneumoperitoneum [Unknown]
  - Mental status changes [Unknown]
  - Vomiting [Unknown]
  - Coagulopathy [Unknown]
  - Gastrointestinal haemorrhage [Unknown]
  - Dyspnoea [Unknown]
  - Nausea [Unknown]
  - Fungal peritonitis [Fatal]
  - Acute hepatic failure [Unknown]
  - Intentional overdose [Unknown]
  - Abdominal distension [Unknown]
  - Hypotension [Unknown]
  - Metabolic acidosis [Unknown]
  - Tenderness [Unknown]
